FAERS Safety Report 15210265 (Version 1)
Quarter: 2018Q3

REPORT INFORMATION
  Report Type: Report from Study
  Country: US (occurrence: US)
  Receive Date: 20180727
  Receipt Date: 20180727
  Transmission Date: 20181010
  Serious: No
  Sender: FDA-Public Use
  Company Number: PHEH2018US030386

PATIENT
  Age: 46 Year
  Sex: Female

DRUGS (4)
  1. GILENYA [Suspect]
     Active Substance: FINGOLIMOD HYDROCHLORIDE
     Indication: MULTIPLE SCLEROSIS
     Dosage: 0.5 MG, QD
     Route: 048
  2. GILENYA [Suspect]
     Active Substance: FINGOLIMOD HYDROCHLORIDE
     Dosage: 0.5 MG, QOD
     Route: 048
     Dates: start: 20180717
  3. NAPROXENE [Concomitant]
     Active Substance: NAPROXEN
     Indication: PAIN
     Route: 065
  4. ACYCLOVIR. [Concomitant]
     Active Substance: ACYCLOVIR
     Indication: PAIN
     Route: 042

REACTIONS (3)
  - Herpes zoster [Unknown]
  - Rash [Unknown]
  - Blister [Unknown]

NARRATIVE: CASE EVENT DATE: 20180709
